FAERS Safety Report 14793471 (Version 1)
Quarter: 2018Q2

REPORT INFORMATION
  Report Type: Spontaneous
  Country: GB (occurrence: GB)
  Receive Date: 20180423
  Receipt Date: 20180423
  Transmission Date: 20180711
  Serious: Yes (Life-Threatening)
  Sender: FDA-Public Use
  Company Number: GB-LPDUSPRD-20180643

PATIENT
  Age: 46 Year
  Sex: Female
  Weight: 61 kg

DRUGS (1)
  1. FERINJECT [Suspect]
     Active Substance: FERRIC CARBOXYMALTOSE
     Dosage: 1 GM
     Route: 041
     Dates: start: 20180401, end: 20180401

REACTIONS (10)
  - Respiratory distress [Unknown]
  - Flushing [Unknown]
  - Pyrexia [Unknown]
  - Hyperventilation [Unknown]
  - Anxiety [Unknown]
  - Arthritis [Unknown]
  - Lymphadenopathy [Unknown]
  - Tachycardia [Unknown]
  - Dyspnoea [Unknown]
  - Erythema [Unknown]

NARRATIVE: CASE EVENT DATE: 20180401
